FAERS Safety Report 9640200 (Version 2)
Quarter: 2013Q4

REPORT INFORMATION
  Report Type: Spontaneous
  Country: CA (occurrence: CA)
  Receive Date: 20131023
  Receipt Date: 20131128
  Transmission Date: 20140711
  Serious: Yes (Hospitalization, Other)
  Sender: FDA-Public Use
  Company Number: CA-AMGEN-CANSP2013073790

PATIENT
  Age: 74 Year
  Sex: Female

DRUGS (5)
  1. PROLIA [Suspect]
     Indication: OSTEOPOROSIS POSTMENOPAUSAL
     Dosage: 60 MG, Q6MO
     Route: 058
     Dates: start: 20120530, end: 20121211
  2. ADALAT XL [Concomitant]
     Indication: HYPERTENSION
     Dosage: 30 UNK, QD
     Route: 048
  3. ATACAND [Concomitant]
     Indication: HYPERTENSION
     Dosage: 8 UNK, QD
     Route: 048
  4. ASA [Concomitant]
     Indication: HYPERTENSION
     Dosage: 81 UNK, QD
     Route: 048
  5. CRESTOR [Concomitant]
     Indication: BLOOD CHOLESTEROL ABNORMAL
     Dosage: 20 UNK, QD
     Route: 048

REACTIONS (1)
  - Atypical femur fracture [Recovered/Resolved]
